FAERS Safety Report 9665447 (Version 1)
Quarter: 2013Q4

REPORT INFORMATION
  Report Type: Spontaneous
  Country: US (occurrence: None)
  Receive Date: 20131031
  Receipt Date: 20131031
  Transmission Date: 20140711
  Serious: No
  Sender: FDA-Public Use
  Company Number: None

PATIENT
  Age: 71 Year
  Sex: Female
  Weight: 73.4 kg

DRUGS (1)
  1. ARANESP [Suspect]
     Dosage: 40 MCG SUBCUTANEOUS?

REACTIONS (1)
  - Rash [None]
